FAERS Safety Report 8249688-8 (Version None)
Quarter: 2012Q1

REPORT INFORMATION
  Report Type: 
  Country: None (occurrence: None)
  Receive Date: 20120316
  Receipt Date: 20110114
  Transmission Date: 20120608
  Serious: Yes (Other)
  Sender: FDA-Public Use
  Company Number: PHHY2011US03250

PATIENT
  Sex: Male

DRUGS (2)
  1. TEKTURNA [Suspect]
  2. AZOR [Suspect]
     Dosage: 40 MG, ORAL
     Route: 048

REACTIONS (1)
  - HYPERTENSION [None]
